FAERS Safety Report 15369758 (Version 1)
Quarter: 2018Q3

REPORT INFORMATION
  Report Type: Spontaneous
  Country: IT (occurrence: IT)
  Receive Date: 20180911
  Receipt Date: 20180911
  Transmission Date: 20181010
  Serious: Yes (Death, Other)
  Sender: FDA-Public Use
  Company Number: IT-ROCHE-2120259

PATIENT

DRUGS (7)
  1. ZEVALIN [Suspect]
     Active Substance: IBRITUMOMAB TIUXETAN
     Dosage: WITH A MAXIMUM TOTAL DOSE OF 0.4 MCI/KG
     Route: 065
  2. ETOPOSIDE. [Suspect]
     Active Substance: ETOPOSIDE
     Indication: SURGICAL PRECONDITIONING
     Dosage: 200 MG/M2, UNK, ON DAYS  ? 5 TO  ? 2  CYCLIC
     Route: 065
  3. RITUXIMAB. [Suspect]
     Active Substance: RITUXIMAB
     Indication: B-CELL LYMPHOMA
     Dosage: ON DAY ?14 AND 21
     Route: 065
  4. CYTARABINE. [Suspect]
     Active Substance: CYTARABINE
     Indication: SURGICAL PRECONDITIONING
     Dosage: 200 MG/M2, UNK, TWICE A DAY ON DAYS ? 5 TO ? 2 ; CYCLIC
     Route: 065
  5. CARMUSTINE [Suspect]
     Active Substance: CARMUSTINE
     Indication: SURGICAL PRECONDITIONING
     Dosage: 300 MG/M2, UNK, ON DAYS  6 CYCLIC
     Route: 065
  6. ZEVALIN [Suspect]
     Active Substance: IBRITUMOMAB TIUXETAN
     Indication: SURGICAL PRECONDITIONING
     Dosage: WITH A MAXIMUM TOTAL DOSE OF 32 MCI
     Route: 065
  7. MELPHALAN. [Suspect]
     Active Substance: MELPHALAN
     Indication: SURGICAL PRECONDITIONING
     Dosage: 140 MG/M2, QD, ON DAY ? 1 ; CYCLICAL
     Route: 065

REACTIONS (5)
  - Bronchopulmonary aspergillosis [Fatal]
  - Progressive multifocal leukoencephalopathy [Fatal]
  - Refractory anaemia with an excess of blasts [Unknown]
  - B-cell lymphoma [Unknown]
  - JC virus infection [Fatal]
